FAERS Safety Report 15255954 (Version 3)
Quarter: 2018Q3

REPORT INFORMATION
  Report Type: Report from Study
  Country: US (occurrence: US)
  Receive Date: 20180808
  Receipt Date: 20180904
  Transmission Date: 20181010
  Serious: Yes (Other)
  Sender: FDA-Public Use
  Company Number: US-PFIZER INC-2018311891

PATIENT
  Age: 4 Year

DRUGS (5)
  1. METHOTREXATE SODIUM. [Suspect]
     Active Substance: METHOTREXATE SODIUM
     Indication: CHEMOTHERAPY
     Dosage: HIGH?DOSE, CYCLIC (ALL 3 INDUCTION CYCLES MG/M2 DOSING)
  2. CYCLOPHOSPHAMIDE. [Suspect]
     Active Substance: CYCLOPHOSPHAMIDE
     Indication: CHEMOTHERAPY
     Dosage: UNK, CYCLIC (ALL 3 INDUCTION CYCLES MG/M2 DOSING)
  3. ETOPOSIDE. [Suspect]
     Active Substance: ETOPOSIDE
     Indication: CHEMOTHERAPY
     Dosage: UNK, CYCLIC ((ALL 3 INDUCTION CYCLES MG/M2 DOSING)
  4. VINCRISTINE SULFATE. [Suspect]
     Active Substance: VINCRISTINE SULFATE
     Indication: CHEMOTHERAPY
     Dosage: UNK, CYCLIC (ALL 3 INDUCTION CYCLES MG/M2 DOSING)
  5. CISPLATIN. [Suspect]
     Active Substance: CISPLATIN
     Indication: CHEMOTHERAPY
     Dosage: UNK, CYCLIC (ALL 3 INDUCTION CYCLES MG/M2 DOSING)

REACTIONS (2)
  - Nephropathy toxic [Unknown]
  - Venoocclusive liver disease [Unknown]
